FAERS Safety Report 9457448 (Version 1)
Quarter: 2013Q3

REPORT INFORMATION
  Report Type: Report from Study
  Country: CA (occurrence: CA)
  Receive Date: 20130814
  Receipt Date: 20130814
  Transmission Date: 20140515
  Serious: Yes (Other)
  Sender: FDA-Public Use
  Company Number: CA-JNJFOC-20130804020

PATIENT
  Age: 15 Year
  Sex: Female
  Weight: 66.8 kg

DRUGS (1)
  1. REMICADE [Suspect]
     Indication: CROHN^S DISEASE
     Dosage: 6-8 WEEKS
     Route: 042
     Dates: start: 20121206

REACTIONS (1)
  - Nephrolithiasis [Recovered/Resolved]
